FAERS Safety Report 17681578 (Version 1)
Quarter: 2020Q2

REPORT INFORMATION
  Report Type: Spontaneous
  Country: PK (occurrence: PK)
  Receive Date: 20200417
  Receipt Date: 20200417
  Transmission Date: 20200714
  Serious: Yes (Death, Hospitalization)
  Sender: FDA-Public Use
  Company Number: PK-NOVOPROD-723219

PATIENT
  Age: 58 Year
  Sex: Male

DRUGS (1)
  1. NOVOMIX 50 FLEXPEN [Suspect]
     Active Substance: INSULIN ASPART
     Indication: TYPE 2 DIABETES MELLITUS
     Dosage: 90 IU, QD(45+45)
     Route: 058
     Dates: start: 20160401

REACTIONS (3)
  - Renal failure [Fatal]
  - Diabetes mellitus inadequate control [Unknown]
  - Cardiac dysfunction [Fatal]
